FAERS Safety Report 5073855-8 (Version None)
Quarter: 2006Q3

REPORT INFORMATION
  Report Type: 
  Country: None (occurrence: None)
  Receive Date: 20060808
  Receipt Date: 20060802
  Transmission Date: 20061208
  Serious: Yes (Other)
  Sender: FDA-Public Use
  Company Number: US-AVENTIS-200616388US

PATIENT
  Sex: Male
  Weight: 104.54 kg

DRUGS (10)
  1. LANTUS [Suspect]
     Indication: DIABETES MELLITUS NON-INSULIN-DEPENDENT
     Dosage: DOSE: 50-80 UNITS
     Dates: start: 20040901
  2. NOVALOG [Concomitant]
  3. AMARYL [Concomitant]
     Dosage: DOSE: UNK
  4. BUMETANIDE [Concomitant]
     Dosage: DOSE: UNK
  5. SPIRONOLACTONE [Concomitant]
     Dosage: DOSE: UNK
  6. FUROSEMIDE [Concomitant]
     Dosage: DOSE: UNK
  7. ATENOLOL [Concomitant]
     Dosage: DOSE: UNK
  8. POTASSIUM [Concomitant]
     Dosage: DOSE: UNK
  9. UROXATROL [Concomitant]
     Dosage: DOSE: UNK
  10. PROSCAR [Concomitant]
     Dosage: DOSE: UNK

REACTIONS (6)
  - ASCITES [None]
  - CONTUSION [None]
  - HEPATIC CIRRHOSIS [None]
  - HEPATIC FIBROSIS [None]
  - INJECTION SITE BRUISING [None]
  - PULMONARY OEDEMA [None]
